FAERS Safety Report 12226188 (Version 1)
Quarter: 2016Q1

REPORT INFORMATION
  Report Type: Spontaneous
  Country: GB (occurrence: GB)
  Receive Date: 20160331
  Receipt Date: 20160331
  Transmission Date: 20160526
  Serious: Yes (Hospitalization, Other)
  Sender: FDA-Public Use
  Company Number: GB-ASTELLAS-2016US011883

PATIENT
  Age: 57 Year
  Sex: Female

DRUGS (5)
  1. VESICARE [Suspect]
     Active Substance: SOLIFENACIN SUCCINATE
     Indication: STRESS URINARY INCONTINENCE
     Dosage: UNK, UNKNOWN FREQ.
     Route: 065
     Dates: start: 201502
  2. ASPIRIN. [Concomitant]
     Active Substance: ASPIRIN
     Indication: SEASONAL ALLERGY
     Dosage: UNK UNK, UNKNOWN FREQ.
     Route: 065
  3. STATIN                             /00036501/ [Concomitant]
     Active Substance: NYSTATIN
     Indication: SEASONAL ALLERGY
     Dosage: UNK UNK, UNKNOWN FREQ.
     Route: 065
  4. LORATADINE. [Concomitant]
     Active Substance: LORATADINE
     Indication: SEASONAL ALLERGY
     Dosage: UNK UNK, UNKNOWN FREQ.
     Route: 065
  5. VESICARE [Suspect]
     Active Substance: SOLIFENACIN SUCCINATE
     Dosage: 5 MG, ONCE DAILY IN THE EVENING
     Route: 048
     Dates: start: 20160317

REACTIONS (5)
  - Gastroenteritis [Recovered/Resolved]
  - Kidney infection [Unknown]
  - Cystitis [Unknown]
  - Sepsis [Recovered/Resolved]
  - Drug ineffective [Unknown]

NARRATIVE: CASE EVENT DATE: 201505
